FAERS Safety Report 6467815-X (Version None)
Quarter: 2009Q4

REPORT INFORMATION
  Report Type: 
  Country: None (occurrence: None)
  Receive Date: 20091202
  Receipt Date: 20091117
  Transmission Date: 20100525
  Serious: Yes (Hospitalization, Other)
  Sender: FDA-Public Use
  Company Number: GB-PFIZER INC-2009304438

PATIENT
  Age: 68 Year
  Sex: Male

DRUGS (3)
  1. METFORMIN HCL [Suspect]
     Indication: TYPE 2 DIABETES MELLITUS
     Dosage: UNK
     Route: 048
  2. GLIBENCLAMIDE [Suspect]
     Indication: TYPE 2 DIABETES MELLITUS
     Route: 048
  3. VITAMIN B-12 [Concomitant]
     Indication: VITAMIN B12 DEFICIENCY
     Dosage: ONCE IN A MONTH

REACTIONS (11)
  - BALANCE DISORDER [None]
  - CEREBROVASCULAR ACCIDENT [None]
  - CLONUS [None]
  - EXTENSOR PLANTAR RESPONSE [None]
  - FALL [None]
  - GAIT DISTURBANCE [None]
  - HYPERREFLEXIA [None]
  - MYELOPATHY [None]
  - PARAPARESIS [None]
  - VITAMIN B12 DEFICIENCY [None]
  - WEIGHT DECREASED [None]
